FAERS Safety Report 11029144 (Version 1)
Quarter: 2015Q2

REPORT INFORMATION
  Report Type: Spontaneous
  Country: FR (occurrence: FR)
  Receive Date: 20150414
  Receipt Date: 20150414
  Transmission Date: 20150821
  Serious: Yes (Hospitalization)
  Sender: FDA-Public Use
  Company Number: FR-ROCHE-1563816

PATIENT
  Age: 56 Year
  Sex: Female

DRUGS (4)
  1. MABTHERA [Suspect]
     Active Substance: RITUXIMAB
     Indication: MYELITIS
     Route: 041
     Dates: start: 20150220, end: 20150220
  2. OMEPRAZOLE. [Concomitant]
     Active Substance: OMEPRAZOLE
     Route: 065
  3. LEVOTHYROX [Concomitant]
     Active Substance: LEVOTHYROXINE
     Route: 065
  4. DEXERYL (FRANCE) [Concomitant]
     Active Substance: GLYCERIN\PARAFFIN

REACTIONS (4)
  - Pancytopenia [Not Recovered/Not Resolved]
  - Septic shock [Recovered/Resolved]
  - Oral herpes [Not Recovered/Not Resolved]
  - Neutropenia [Recovered/Resolved]

NARRATIVE: CASE EVENT DATE: 20150221
